FAERS Safety Report 4792860-X (Version None)
Quarter: 2005Q4

REPORT INFORMATION
  Report Type: 
  Country: None (occurrence: None)
  Receive Date: 20051010
  Receipt Date: 20050930
  Transmission Date: 20060501
  Serious: Yes (Hospitalization)
  Sender: FDA-Public Use
  Company Number: PHBS2005FR14583

PATIENT
  Age: 74 Year
  Sex: Male

DRUGS (6)
  1. CALCITONIN [Suspect]
     Dosage: 50 MG, QD
     Route: 058
     Dates: start: 20050701
  2. REMINYL [Suspect]
     Indication: DEMENTIA ALZHEIMER'S TYPE
     Dates: start: 20050501
  3. ANAFRANIL [Concomitant]
     Dosage: 10 MG, QD
  4. VASOBRAL [Concomitant]
     Dates: start: 20050501
  5. ETIOVEN [Concomitant]
  6. SPECIAFOLDINE [Concomitant]

REACTIONS (1)
  - WEIGHT DECREASED [None]
